FAERS Safety Report 19999964 (Version 2)
Quarter: 2021Q4

REPORT INFORMATION
  Report Type: Other
  Country: FR (occurrence: FR)
  Receive Date: 20211027
  Receipt Date: 20211118
  Transmission Date: 20220303
  Serious: Yes (Death)
  Sender: FDA-Public Use
  Company Number: FR-DEXPHARM-20211784

PATIENT
  Age: 43 Year
  Sex: Male

DRUGS (5)
  1. PREGABALIN [Interacting]
     Active Substance: PREGABALIN
  2. COCAINE [Interacting]
     Active Substance: COCAINE
  3. CYAMEMAZINE [Suspect]
     Active Substance: CYAMEMAZINE
  4. VENLAFAXINE [Interacting]
     Active Substance: VENLAFAXINE HYDROCHLORIDE
  5. CANNABIS SATIVA SUBSP. INDICA TOP [Suspect]
     Active Substance: CANNABIS SATIVA SUBSP. INDICA TOP

REACTIONS (4)
  - Incorrect route of product administration [Fatal]
  - Death [Fatal]
  - Drug abuse [Fatal]
  - Drug interaction [Fatal]
